FAERS Safety Report 10032169 (Version 3)
Quarter: 2014Q2

REPORT INFORMATION
  Report Type: Spontaneous
  Country: US (occurrence: US)
  Receive Date: 20140324
  Receipt Date: 20140507
  Transmission Date: 20141212
  Serious: Yes (Death, Hospitalization, Disabling, Other)
  Sender: FDA-Public Use
  Company Number: US-INCYTE CORPORATION-2014IN000653

PATIENT
  Age: 76 Year
  Sex: Male
  Weight: 90.7 kg

DRUGS (10)
  1. JAKAFI [Suspect]
     Indication: MYELOFIBROSIS
     Dosage: 20 MG, QD
     Route: 048
     Dates: start: 20120925
  2. JAKAFI [Suspect]
     Dosage: 10 MG, BID
     Route: 048
     Dates: start: 20130412
  3. VIAGRA [Concomitant]
     Dosage: TAKE AS DIRECTED
     Route: 048
  4. ZOLPIDEM [Concomitant]
     Dosage: 1-2 TABS, AT BEDTIME, PRN
     Route: 048
  5. ADVIL                              /00109201/ [Concomitant]
     Dosage: 200 MG, PRN
     Route: 048
  6. ASPIRIN [Concomitant]
     Dosage: 81 MG, QD
     Route: 048
  7. CO Q-10 [Concomitant]
     Dosage: 200 MG, QD
     Route: 048
  8. CYCLOBENZAPRINE HCL [Concomitant]
     Dosage: 1 DF, TID
  9. MELOXICAM [Concomitant]
     Dosage: 15 MG, QD
     Route: 048
  10. SIMVASTATIN [Concomitant]
     Dosage: 20 MG, QD
     Route: 048

REACTIONS (10)
  - Death [Fatal]
  - Urinary tract infection [Unknown]
  - Renal failure acute [Unknown]
  - Dehydration [Unknown]
  - Pleural effusion [Unknown]
  - Respiratory distress [Unknown]
  - Hypoxia [Unknown]
  - Hyperkalaemia [Unknown]
  - Asthenia [Unknown]
  - Platelet count decreased [Unknown]
